FAERS Safety Report 5452715-4 (Version None)
Quarter: 2007Q3

REPORT INFORMATION
  Report Type: 
  Country: None (occurrence: None)
  Receive Date: 20070914
  Receipt Date: 20070831
  Transmission Date: 20080115
  Serious: Yes (Hospitalization, Disabling, Other)
  Sender: FDA-Public Use
  Company Number: DE-PURDUE-DEU_2007_0003202

PATIENT
  Age: 50 Year
  Sex: Male
  Weight: 85 kg

DRUGS (16)
  1. MORPHINE SULFATE [Suspect]
     Indication: BACK PAIN
     Dosage: UNK, UNK
     Route: 037
     Dates: start: 20061126, end: 20070301
  2. GLIMEPIRIDE [Concomitant]
  3. MOXONIDINE [Concomitant]
  4. VALSARTAN [Concomitant]
  5. HYDROCHLOROTHIAZIDE [Concomitant]
  6. LERCANIDIPINE [Concomitant]
  7. METOPROLOL SUCCINATE [Concomitant]
  8. ESOMEPRAZOLE MAGNESIUM [Concomitant]
  9. DICLOFENAC [Concomitant]
  10. AMITRIPTYLINE HCL [Concomitant]
  11. ACC LONG [Concomitant]
  12. TILIDIN ^RATIOPHARM^ [Concomitant]
  13. METAMIZOLE [Concomitant]
  14. LEVETIRACETAM [Concomitant]
  15. OXAZEPAM [Concomitant]
  16. CERTOPARIN SODIUM [Concomitant]

REACTIONS (19)
  - ANAEMIA [None]
  - AUTONOMIC NERVOUS SYSTEM IMBALANCE [None]
  - BRAIN OEDEMA [None]
  - CEREBRAL INFARCTION [None]
  - DELIRIUM [None]
  - DRUG INTOLERANCE [None]
  - DYSPHAGIA [None]
  - EPILEPSY [None]
  - FAECAL INCONTINENCE [None]
  - HEMIANOPIA HOMONYMOUS [None]
  - HYPERTENSIVE CRISIS [None]
  - LEUKOENCEPHALOPATHY [None]
  - MENTAL DISORDER DUE TO A GENERAL MEDICAL CONDITION [None]
  - MENTAL IMPAIRMENT [None]
  - NOCTURNAL DYSPNOEA [None]
  - OXYGEN SATURATION DECREASED [None]
  - PANIC REACTION [None]
  - QUADRIPARESIS [None]
  - URINARY INCONTINENCE [None]
